FAERS Safety Report 8119799-6 (Version None)
Quarter: 2012Q1

REPORT INFORMATION
  Report Type: 
  Country: None (occurrence: None)
  Receive Date: 20120207
  Receipt Date: 20120127
  Transmission Date: 20120608
  Serious: Yes (Hospitalization)
  Sender: FDA-Public Use
  Company Number: FI-TEVA-2011005859

PATIENT
  Sex: Male
  Weight: 101 kg

DRUGS (2)
  1. BENDAMUSTINE [Suspect]
     Route: 042
     Dates: start: 20111019
  2. RITUXIMAB [Suspect]
     Route: 042
     Dates: start: 20111019

REACTIONS (2)
  - LISTERIA SEPSIS [None]
  - LISTERIOSIS [None]
